FAERS Safety Report 12526424 (Version 1)
Quarter: 2016Q3

REPORT INFORMATION
  Report Type: Other
  Country: IN (occurrence: IN)
  Receive Date: 20160705
  Receipt Date: 20160705
  Transmission Date: 20161109
  Serious: Yes (Other)
  Sender: FDA-Public Use
  Company Number: IN-HETERO LABS LTD-1054613

PATIENT
  Age: 33 Year
  Sex: Male

DRUGS (1)
  1. FINASTERIDE. [Suspect]
     Active Substance: FINASTERIDE
     Indication: ANDROGENETIC ALOPECIA
     Route: 065

REACTIONS (5)
  - Abdominal discomfort [Not Recovered/Not Resolved]
  - Seborrhoea [Not Recovered/Not Resolved]
  - Rash [Not Recovered/Not Resolved]
  - Dysuria [Not Recovered/Not Resolved]
  - Pruritus [Not Recovered/Not Resolved]
